FAERS Safety Report 5647101-8 (Version None)
Quarter: 2008Q1

REPORT INFORMATION
  Report Type: 
  Country: None (occurrence: None)
  Receive Date: 20080228
  Receipt Date: 20080228
  Transmission Date: 20080703
  Serious: No
  Sender: FDA-Public Use
  Company Number: None

PATIENT
  Age: 77 Year
  Sex: Female
  Weight: 46.4 kg

DRUGS (1)
  1. VISIPAQUE 320 [Suspect]
     Indication: SCAN WITH CONTRAST
     Dosage: 80 ML  ONE TIME  IV BOLUS
     Route: 040
     Dates: start: 20080226, end: 20080226

REACTIONS (4)
  - COUGH [None]
  - NASAL CONGESTION [None]
  - OCULAR HYPERAEMIA [None]
  - SKIN DISCOLOURATION [None]
